FAERS Safety Report 12252586 (Version 1)
Quarter: 2016Q2

REPORT INFORMATION
  Report Type: Spontaneous
  Country: US (occurrence: US)
  Receive Date: 20160411
  Receipt Date: 20160411
  Transmission Date: 20160815
  Serious: No
  Sender: FDA-Public Use
  Company Number: US-TEVA-623338USA

PATIENT

DRUGS (1)
  1. OMEGA-3-ACID ETHYL ESTERS. [Suspect]
     Active Substance: OMEGA-3-ACID ETHYL ESTERS

REACTIONS (4)
  - Asthma [Unknown]
  - Vocal cord disorder [Unknown]
  - Product taste abnormal [Unknown]
  - Gastrooesophageal reflux disease [Unknown]
